FAERS Safety Report 5480424-4 (Version None)
Quarter: 2007Q4

REPORT INFORMATION
  Report Type: 
  Country: None (occurrence: None)
  Receive Date: 20071004
  Receipt Date: 20071004
  Transmission Date: 20080405
  Serious: Yes (Hospitalization)
  Sender: FDA-Public Use
  Company Number: None

PATIENT
  Sex: Female
  Weight: 67.1324 kg

DRUGS (4)
  1. FLUOXETINE [Suspect]
     Indication: MOOD SWINGS
     Dosage: ONE PO QD
     Route: 048
     Dates: start: 20060511, end: 20070629
  2. FLUOXETINE [Suspect]
     Indication: SLEEP DISORDER
     Dosage: ONE PO QD
     Route: 048
     Dates: start: 20060511, end: 20070629
  3. TOPAMAX [Concomitant]
  4. PROCARDIA XL [Concomitant]

REACTIONS (3)
  - CONDITION AGGRAVATED [None]
  - IRRITABLE BOWEL SYNDROME [None]
  - PHARMACEUTICAL PRODUCT COMPLAINT [None]
